FAERS Safety Report 25781007 (Version 2)
Quarter: 2025Q3

REPORT INFORMATION
  Report Type: Spontaneous
  Country: EU (occurrence: EU)
  Receive Date: 20250909
  Receipt Date: 20250922
  Transmission Date: 20251021
  Serious: Yes (Other)
  Sender: REGENERON
  Company Number: EU-REGENERON PHARMACEUTICALS, INC.-2025-142308

PATIENT
  Age: 83 Year
  Sex: Male

DRUGS (3)
  1. LIBTAYO [Suspect]
     Active Substance: CEMIPLIMAB-RWLC
     Indication: Non-small cell lung cancer
  2. CARBOPLATIN [Concomitant]
     Active Substance: CARBOPLATIN
     Indication: Chemotherapy
  3. PACLITAXEL [Concomitant]
     Active Substance: PACLITAXEL
     Indication: Chemotherapy

REACTIONS (3)
  - Demyelinating polyneuropathy [Unknown]
  - Peripheral coldness [Not Recovered/Not Resolved]
  - Pain in extremity [Not Recovered/Not Resolved]
